FAERS Safety Report 7643690-2 (Version None)
Quarter: 2011Q3

REPORT INFORMATION
  Report Type: 
  Country: None (occurrence: None)
  Receive Date: 20110729
  Receipt Date: 20110715
  Transmission Date: 20111222
  Serious: Yes (Congenital Anomaly)
  Sender: FDA-Public Use
  Company Number: DE-UCBSA-036204

PATIENT
  Sex: Male
  Weight: 4.7 kg

DRUGS (2)
  1. KEPPRA [Suspect]
     Dosage: 500-0-1000 MG
     Route: 063
     Dates: start: 20101117, end: 20101119
  2. KEPPRA [Suspect]
     Dosage: 500-0-1000 MG
     Route: 064
     Dates: start: 20100101, end: 20101101

REACTIONS (4)
  - TOOTH MALFORMATION [None]
  - JAUNDICE NEONATAL [None]
  - MATERNAL EXPOSURE DURING PREGNANCY [None]
  - EXPOSURE DURING BREAST FEEDING [None]
